FAERS Safety Report 14233475 (Version 2)
Quarter: 2017Q4

REPORT INFORMATION
  Report Type: Spontaneous
  Country: PL (occurrence: PL)
  Receive Date: 20171128
  Receipt Date: 20171206
  Transmission Date: 20180321
  Serious: Yes (Other)
  Sender: FDA-Public Use
  Company Number: PL-TEVA-2017-PL-826421

PATIENT
  Age: 30 Year
  Sex: Male

DRUGS (4)
  1. DOXORUBICIN [Suspect]
     Active Substance: DOXORUBICIN
     Indication: METASTASES TO LUNG
     Dosage: 2.8571 MG/M2 DAILY; 3 CYCLES OF AP3 SCHEME: DOXORUBICIN AND CISPLATIN. DOSAGE: ON DAYS 1-3, REPEATED
     Dates: start: 20130410, end: 20130525
  2. CISPLATIN. [Suspect]
     Active Substance: CISPLATIN
     Indication: SARCOMA
  3. CISPLATIN. [Suspect]
     Active Substance: CISPLATIN
     Indication: METASTASES TO LUNG
     Dosage: 4.2857 MG/M2 DAILY; 3 CYCLES OF AP3 SCHEME: DOXORUBICIN AND CISPLATIN. DOSAGE: ON DAYS 1-3, REPEATED
     Dates: start: 20130410, end: 20130525
  4. DOXORUBICIN [Suspect]
     Active Substance: DOXORUBICIN
     Indication: SARCOMA

REACTIONS (3)
  - Neoplasm [Recovered/Resolved]
  - Metastases to lung [Recovered/Resolved]
  - Disease progression [Recovered/Resolved]
